FAERS Safety Report 8329974-3 (Version None)
Quarter: 2012Q2

REPORT INFORMATION
  Report Type: 
  Country: None (occurrence: None)
  Receive Date: 20120502
  Receipt Date: 20091210
  Transmission Date: 20120825
  Serious: No
  Sender: FDA-Public Use
  Company Number: US-TEVA-2009029664

PATIENT
  Sex: Female

DRUGS (8)
  1. CYMBALTA [Concomitant]
     Indication: DEPRESSION
     Dosage: 120 MILLIGRAM;
     Route: 048
     Dates: start: 20090908
  2. NUVIGIL [Suspect]
     Indication: DEPRESSION
     Dosage: 250 MILLIGRAM;
     Route: 048
     Dates: start: 20091209
  3. NUVIGIL [Suspect]
     Indication: FATIGUE
  4. RESTORIL [Concomitant]
     Indication: SLEEP DISORDER
     Dosage: 15 MILLIGRAM;
     Route: 048
     Dates: start: 20090901
  5. HYDROCHLOROTHIAZIDE [Concomitant]
     Indication: HYPERTENSION
     Dosage: 25 MILLIGRAM;
     Route: 048
  6. ABILIFY [Concomitant]
     Indication: DEPRESSION
     Dosage: 15 MILLIGRAM;
     Route: 048
     Dates: start: 20091208
  7. PRILOSEC [Concomitant]
     Indication: GASTROOESOPHAGEAL REFLUX DISEASE
     Dosage: 20 MILLIGRAM;
     Route: 048
     Dates: start: 20040101
  8. LISINOPRIL [Concomitant]
     Indication: HYPERTENSION
     Dosage: 2.5 MILLIGRAM;
     Dates: start: 20080401

REACTIONS (3)
  - PSYCHOMOTOR HYPERACTIVITY [None]
  - INSOMNIA [None]
  - DRUG EFFECT INCREASED [None]
